FAERS Safety Report 4782748-2 (Version None)
Quarter: 2005Q3

REPORT INFORMATION
  Report Type: 
  Country: None (occurrence: None)
  Receive Date: 20050929
  Receipt Date: 20040929
  Transmission Date: 20060218
  Serious: No
  Sender: FDA-Public Use
  Company Number: US-GLAXOSMITHKLINE-A0527776A

PATIENT
  Sex: Male

DRUGS (2)
  1. EPIVIR-HBV [Suspect]
     Dosage: 100MG PER DAY
     Route: 048
  2. ALLEGRA [Concomitant]

REACTIONS (1)
  - PAIN IN EXTREMITY [None]
